FAERS Safety Report 19005887 (Version 1)
Quarter: 2021Q1

REPORT INFORMATION
  Report Type: Spontaneous
  Country: US (occurrence: US)
  Receive Date: 20210314
  Receipt Date: 20210314
  Transmission Date: 20210420
  Serious: Yes (Death, Other)
  Sender: FDA-Public Use
  Company Number: US-TEVA-2021-US-1889280

PATIENT
  Age: 54 Year
  Sex: Female

DRUGS (2)
  1. ADIPEX [Suspect]
     Active Substance: PHENTERMINE
     Route: 065
  2. SYNTHROID [Concomitant]
     Active Substance: LEVOTHYROXINE SODIUM
     Indication: HYPOTHYROIDISM

REACTIONS (3)
  - Cardiomyopathy [Unknown]
  - Pharyngeal swelling [Fatal]
  - Coronary artery occlusion [Unknown]
